FAERS Safety Report 5055590-5 (Version None)
Quarter: 2006Q3

REPORT INFORMATION
  Report Type: 
  Country: None (occurrence: None)
  Receive Date: 20060719
  Receipt Date: 20060412
  Transmission Date: 20061208
  Serious: No
  Sender: FDA-Public Use
  Company Number: US-AMGEN-KDL176273

PATIENT
  Sex: Male

DRUGS (13)
  1. PROCRIT [Suspect]
     Indication: ANAEMIA OF MALIGNANT DISEASE
     Route: 058
     Dates: start: 20041101
  2. MEDICINALPRODUCT NOT SPECIFIED BY SENDER [Concomitant]
  3. MEDICINALPRODUCT NOT SPECIFIED BY SENDER [Concomitant]
  4. MEDICINALPRODUCT NOT SPECIFIED BY SENDER [Concomitant]
  5. MEDICINALPRODUCT NOT SPECIFIED BY SENDER [Concomitant]
     Route: 048
  6. MEDICINALPRODUCT NOT SPECIFIED BY SENDER [Concomitant]
     Route: 048
  7. MEDICINALPRODUCT NOT SPECIFIED BY SENDER [Concomitant]
     Route: 062
  8. MEDICINALPRODUCT NOT SPECIFIED BY SENDER [Concomitant]
     Route: 048
  9. MEDICINALPRODUCT NOT SPECIFIED BY SENDER [Concomitant]
     Route: 048
  10. MEDICINALPRODUCT NOT SPECIFIED BY SENDER [Concomitant]
     Route: 048
  11. MEDICINALPRODUCT NOT SPECIFIED BY SENDER [Concomitant]
     Route: 061
  12. MEDICINALPRODUCT NOT SPECIFIED BY SENDER [Concomitant]
     Route: 061
  13. MEDICINALPRODUCT NOT SPECIFIED BY SENDER [Concomitant]
     Route: 048

REACTIONS (5)
  - DEEP VEIN THROMBOSIS [None]
  - HYPERSENSITIVITY [None]
  - PLATELET COUNT DECREASED [None]
  - PRURITUS [None]
  - SKIN ULCER [None]
